FAERS Safety Report 14952741 (Version 1)
Quarter: 2018Q2

REPORT INFORMATION
  Report Type: Spontaneous
  Country: US (occurrence: US)
  Receive Date: 20180530
  Receipt Date: 20180530
  Transmission Date: 20180711
  Serious: Yes (Hospitalization, Other)
  Sender: FDA-Public Use
  Company Number: US-SUPERNUS PHARMACEUTICALS, INC.-2018SUP00175

PATIENT
  Sex: Female

DRUGS (3)
  1. TROKENDI XR [Suspect]
     Active Substance: TOPIRAMATE
     Indication: GENERALISED TONIC-CLONIC SEIZURE
     Dosage: 400 MG, 1X/DAY
     Dates: start: 201710
  2. TOPAMAX [Suspect]
     Active Substance: TOPIRAMATE
     Indication: GENERALISED TONIC-CLONIC SEIZURE
     Dosage: 200 MG, 2X/DAY
  3. TOPIRAMATE. [Suspect]
     Active Substance: TOPIRAMATE
     Indication: GENERALISED TONIC-CLONIC SEIZURE
     Dosage: UNK
     Dates: start: 2010, end: 2010

REACTIONS (11)
  - Concussion [Unknown]
  - Road traffic accident [Unknown]
  - Speech disorder [Unknown]
  - Hospitalisation [Unknown]
  - Performance status decreased [Unknown]
  - Aura [Unknown]
  - Vomiting [Unknown]
  - Aphasia [Unknown]
  - Wrong strength [Unknown]
  - Seizure [Unknown]
  - Mental impairment [Unknown]

NARRATIVE: CASE EVENT DATE: 2011
